FAERS Safety Report 15954845 (Version 4)
Quarter: 2019Q1

REPORT INFORMATION
  Report Type: Spontaneous
  Country: US (occurrence: US)
  Receive Date: 20190213
  Receipt Date: 20190323
  Transmission Date: 20190417
  Serious: Yes (Disabling, Other)
  Sender: FDA-Public Use
  Company Number: US-AMGEN-USASP2019022486

PATIENT
  Age: 63 Year
  Sex: Female
  Weight: 53.33 kg

DRUGS (23)
  1. ESTRING [Concomitant]
     Active Substance: ESTRADIOL
     Dosage: 1 DOSAGE FORM, QD
     Route: 067
  2. DHA [Concomitant]
     Active Substance: DIETARY SUPPLEMENT
     Dosage: 1 DOSAGE FORM, QD
     Route: 048
  3. CRANBERRY. [Concomitant]
     Active Substance: CRANBERRY
     Dosage: 1 DOSAGE FORM, QD
     Route: 048
  4. BIOTIN [Concomitant]
     Active Substance: BIOTIN
     Dosage: 1 DOSAGE FORM, QD
     Route: 048
  5. CALCIUM CARBONATE. [Concomitant]
     Active Substance: CALCIUM CARBONATE
     Dosage: 1 DOSAGE FORM, QD (600-800 IU MG)
     Route: 048
  6. MAGNESIUM OXIDE. [Concomitant]
     Active Substance: MAGNESIUM OXIDE
     Dosage: 1 DOSAGE FORM, QD (600-800 IU MG)
     Route: 048
  7. CHELATED MAGNESIUM [Concomitant]
     Dosage: 1 DOSAGE FORM, QD
     Route: 048
  8. COQ10 [Concomitant]
     Active Substance: UBIDECARENONE
     Dosage: 2 DOSAGE FORM, QD
     Route: 048
  9. ELDERBERRY [Concomitant]
     Active Substance: HERBALS
     Dosage: UNK, QD
     Route: 048
  10. IMMUNE ENHANCE [Concomitant]
     Dosage: 1 DOSAGE FORM, QD
     Route: 048
  11. OREGANO OIL [Concomitant]
     Dosage: 1 DOSAGE FORM, QD
     Route: 048
  12. IMLYGIC [Suspect]
     Active Substance: TALIMOGENE LAHERPAREPVEC
     Indication: MALIGNANT MELANOMA
     Dosage: 1 MILLILITER (1 VIAL OF 1 ML 106, TEST DOSE)
     Route: 065
     Dates: start: 20190107
  13. COLECALCIFEROL [Concomitant]
     Active Substance: CHOLECALCIFEROL
     Dosage: 1 DOSAGE FORM, QD (600-800 IU MG)
     Route: 048
  14. NALTREXONE [Concomitant]
     Active Substance: NALTREXONE
     Dosage: 380 MILLIGRAM, QD
     Route: 030
  15. NATURE-THROID [Concomitant]
     Active Substance: THYROID, PORCINE
     Dosage: 1 DOSAGE FORM, QD
     Route: 048
  16. VITAMIN D3 [Concomitant]
     Active Substance: CHOLECALCIFEROL
     Dosage: 1 DOSAGE FORM, QD
     Route: 048
  17. VITAMIN B-6 [Concomitant]
     Active Substance: PYRIDOXINE
     Dosage: 1 DOSAGE FORM, QD
     Route: 048
  18. VITAMIN C [Concomitant]
     Active Substance: ASCORBIC ACID
     Dosage: 1 DOSAGE FORM, QD
     Route: 048
  19. OMEGA 3 EPA [Concomitant]
     Dosage: 1 DOSAGE FORM, QD
     Route: 048
  20. 4LIFE TRANSFER FACTOR [Concomitant]
     Dosage: 2 DOSAGE FORM, QD
     Route: 048
  21. ZINC. [Concomitant]
     Active Substance: ZINC
     Dosage: 1 DOSAGE FORM, QD (600-800 IU MG)
     Route: 048
  22. VITAMIN B12 [Concomitant]
     Active Substance: CYANOCOBALAMIN
     Dosage: 1 DOSAGE FORM, QD
     Route: 048
  23. SCOPOLAMINE [Concomitant]
     Active Substance: SCOPOLAMINE
     Dosage: 1 DOSAGE FORM, QD
     Route: 062

REACTIONS (4)
  - Stomatitis [Recovered/Resolved]
  - Pneumonia [Recovering/Resolving]
  - Rash macular [Not Recovered/Not Resolved]
  - Body mass index decreased [Unknown]

NARRATIVE: CASE EVENT DATE: 20190120
